FAERS Safety Report 8806072 (Version 2)
Quarter: 2012Q4

REPORT INFORMATION
  Report Type: 
  Country: US (occurrence: US)
  Receive Date: 20120925
  Receipt Date: 20121126
  Transmission Date: 20130627
  Serious: Yes (Hospitalization)
  Sender: FDA-Public Use
  Company Number: US-BAYER-2012-091619

PATIENT
  Age: 72 Year
  Sex: Female
  Weight: 92.99 kg

DRUGS (11)
  1. XARELTO [Suspect]
     Indication: ATRIAL FIBRILLATION
     Dosage: 15 mg, UNK
     Route: 048
     Dates: start: 20120801
  2. XARELTO [Suspect]
     Indication: CEREBROVASCULAR ACCIDENT PROPHYLAXIS
  3. ACETYLSALICYLIC ACID({=100 MG) [Interacting]
     Indication: HEART DISORDER
     Dosage: 81 mg, UNK
     Route: 048
  4. TEMAZEPAM [Concomitant]
     Indication: SLEEPLESSNESS
     Dosage: 7.5 mg, UNK
     Route: 048
  5. AMLODIPINE [Concomitant]
     Indication: BLOOD PRESSURE ABNORMAL
  6. LISINOPRIL [Concomitant]
     Indication: BLOOD PRESSURE ABNORMAL
  7. LISINOPRIL [Concomitant]
     Indication: BLOOD PRESSURE ABNORMAL
  8. METOPROLOL [Concomitant]
     Indication: BLOOD PRESSURE ABNORMAL
  9. TRAMADOL [Concomitant]
     Indication: PAIN
  10. TRAMADOL [Concomitant]
     Indication: PAIN
  11. TYLENOL [PARACETAMOL] [Concomitant]
     Indication: SLEEPLESSNESS

REACTIONS (3)
  - Lip haemorrhage [Not Recovered/Not Resolved]
  - Inappropriate schedule of drug administration [Unknown]
  - Chapped lips [None]
